FAERS Safety Report 8954530 (Version 1)
Quarter: 2012Q4

REPORT INFORMATION
  Report Type: Spontaneous
  Country: US (occurrence: None)
  Receive Date: 20121205
  Receipt Date: 20121205
  Transmission Date: 20130627
  Serious: Yes (Other)
  Sender: FDA-Public Use
  Company Number: None

PATIENT
  Sex: Female
  Weight: 65.77 kg

DRUGS (1)
  1. LOSARTAN [Suspect]
     Indication: HYPERTENSION
     Dosage: 12.5 Mg. 1 X Day Mouth
     Route: 048
     Dates: start: 20120818

REACTIONS (3)
  - Pruritus [None]
  - Pain in extremity [None]
  - Sleep disorder [None]
